FAERS Safety Report 9282728 (Version 1)
Quarter: 2013Q2

REPORT INFORMATION
  Report Type: Spontaneous
  Country: US (occurrence: None)
  Receive Date: 20130509
  Receipt Date: 20130509
  Transmission Date: 20140414
  Serious: No
  Sender: FDA-Public Use
  Company Number: None

PATIENT
  Age: 94 Year
  Sex: Female
  Weight: 83.46 kg

DRUGS (1)
  1. TOPROL XL [Suspect]
     Indication: HEART RATE IRREGULAR
     Dosage: 30 DAY 1 A DAY MOUTH
     Route: 048
     Dates: start: 20130412

REACTIONS (2)
  - Tablet physical issue [None]
  - No adverse event [None]
